FAERS Safety Report 13996158 (Version 1)
Quarter: 2017Q3

REPORT INFORMATION
  Report Type: Spontaneous
  Country: US (occurrence: US)
  Receive Date: 20170921
  Receipt Date: 20170921
  Transmission Date: 20171128
  Serious: No
  Sender: FDA-Public Use
  Company Number: US-AMARIN PHARMA, INC.-2017AMR000146

PATIENT
  Sex: Male
  Weight: 86.26 kg

DRUGS (2)
  1. VASCEPA [Suspect]
     Active Substance: ICOSAPENT ETHYL
     Indication: BLOOD CHOLESTEROL
     Route: 048
  2. VASCEPA [Suspect]
     Active Substance: ICOSAPENT ETHYL
     Indication: BLOOD TRIGLYCERIDES

REACTIONS (5)
  - Abdominal discomfort [Unknown]
  - Product coating issue [Unknown]
  - Eructation [Unknown]
  - Product odour abnormal [Unknown]
  - Product physical issue [Unknown]
